FAERS Safety Report 17192255 (Version 1)
Quarter: 2019Q4

REPORT INFORMATION
  Report Type: Spontaneous
  Country: CN (occurrence: CN)
  Receive Date: 20191223
  Receipt Date: 20191223
  Transmission Date: 20200122
  Serious: Yes (Other)
  Sender: FDA-Public Use
  Company Number: CN-JNJFOC-20191218935

PATIENT
  Age: 66 Year
  Sex: Male
  Weight: 55 kg

DRUGS (7)
  1. BU RUI PING [Concomitant]
     Indication: MUSCLE SPASMS
     Dates: start: 20191120, end: 20191124
  2. PULMICORT TURBUHALER [Concomitant]
     Active Substance: BUDESONIDE
     Indication: MUSCLE SPASMS
     Dates: start: 20191120, end: 20191124
  3. KETOTIFEN FUMARATE. [Concomitant]
     Active Substance: KETOTIFEN FUMARATE
     Indication: ASTHMA
     Route: 048
     Dates: start: 20191120, end: 20191124
  4. AMINOPHYLLINE. [Concomitant]
     Active Substance: AMINOPHYLLINE
     Indication: MUSCLE SPASMS
     Route: 041
     Dates: start: 20191120, end: 20191124
  5. SPORANOX [Suspect]
     Active Substance: ITRACONAZOLE
     Indication: FUNGAL INFECTION
     Route: 048
     Dates: start: 20191121, end: 20191124
  6. MI LE SONG [Concomitant]
     Indication: ASTHMA
     Route: 041
     Dates: start: 20191121, end: 20191124
  7. PARACETAMOL, AMANTADINE HYDROCHLORIDE AND CHL [Concomitant]
     Indication: NASOPHARYNGITIS
     Route: 048
     Dates: start: 20191120, end: 20191124

REACTIONS (1)
  - Agranulocytosis [Recovering/Resolving]

NARRATIVE: CASE EVENT DATE: 20191124
